FAERS Safety Report 4444102-2 (Version None)
Quarter: 2004Q3

REPORT INFORMATION
  Report Type: 
  Country: None (occurrence: None)
  Receive Date: 20040729
  Receipt Date: 20030910
  Transmission Date: 20050211
  Serious: Yes (Hospitalization)
  Sender: FDA-Public Use
  Company Number: US-JNJFOC-20030804192

PATIENT
  Age: 36 Year
  Sex: Male
  Weight: 97.1 kg

DRUGS (12)
  1. RISPERDAL [Suspect]
     Indication: DEPRESSION
     Dosage: ORAL
  2. RAD001AXD04 (ALL OTHER THERAPEUTIC PRODUCTS) [Suspect]
     Indication: RENAL TRANSPLANT
     Dosage: 1.5 MG, 2 IN 1 DAY
     Dates: start: 20020612
  3. NEORAL [Concomitant]
  4. PREDNISONE [Concomitant]
  5. MINOXIDIL [Concomitant]
  6. METOPROLOL [Concomitant]
  7. PROCARDIA [Concomitant]
  8. CLONIDINE HCL [Concomitant]
  9. LASIX [Concomitant]
  10. XANAX [Concomitant]
  11. PROTONIX [Concomitant]
  12. REGLAN [Concomitant]

REACTIONS (6)
  - CHOLELITHIASIS [None]
  - DECREASED APPETITE [None]
  - MYALGIA [None]
  - NAUSEA [None]
  - VOMITING [None]
  - WEIGHT DECREASED [None]
